FAERS Safety Report 10722759 (Version 2)
Quarter: 2015Q1

REPORT INFORMATION
  Report Type: Spontaneous
  Country: GB (occurrence: GB)
  Receive Date: 20150120
  Receipt Date: 20150221
  Transmission Date: 20150721
  Serious: Yes (Other)
  Sender: FDA-Public Use
  Company Number: GB-AUROBINDO-AUR-APL-2013-00949

PATIENT
  Age: 61 Year
  Sex: Male

DRUGS (14)
  1. EZETIMIBE. [Suspect]
     Active Substance: EZETIMIBE
     Indication: PRODUCT USED FOR UNKNOWN INDICATION
     Dosage: 10 MG, ONCE A DAY
     Route: 048
     Dates: start: 2009
  2. LANSOPRAZOL [Concomitant]
     Active Substance: LANSOPRAZOLE
     Indication: GASTRIC DISORDER
     Dosage: 30 MG, ONCE A DAY
     Route: 048
  3. CLOZARIL [Suspect]
     Active Substance: CLOZAPINE
     Dosage: 350 MG,UNK,
     Route: 048
  4. CLOZARIL [Suspect]
     Active Substance: CLOZAPINE
     Dosage: 500 MG,UNK,
     Route: 048
     Dates: start: 20050308
  5. IRON [Concomitant]
     Active Substance: IRON
     Indication: PRODUCT USED FOR UNKNOWN INDICATION
     Dosage: UNK UNK,UNK,
     Route: 065
  6. PROCYCLIDINE [Concomitant]
     Active Substance: PROCYCLIDINE
     Indication: EXTRAPYRAMIDAL DISORDER
     Dosage: 5 MG, ONCE A DAY
     Route: 048
  7. CLOZARIL [Suspect]
     Active Substance: CLOZAPINE
     Indication: SCHIZOPHRENIA
     Dosage: UNK
     Route: 048
     Dates: start: 20050225
  8. ADCAL-D3 [Concomitant]
     Active Substance: CALCIUM CARBONATE\CHOLECALCIFEROL
     Indication: PRODUCT USED FOR UNKNOWN INDICATION
     Dosage: UNK UNK,TWO TIMES A DAY,
     Route: 048
  9. TRIHEXYPHENIDYL [Concomitant]
     Active Substance: TRIHEXYPHENIDYL
     Indication: EXTRAPYRAMIDAL DISORDER
     Dosage: 15 MG, UNK
     Route: 048
  10. SIMVASTATIN TABLETS 40 MG [Suspect]
     Active Substance: SIMVASTATIN
     Indication: PRODUCT USED FOR UNKNOWN INDICATION
     Dosage: 40 MG, ONCE A DAY
     Route: 048
     Dates: start: 2006
  11. ALENDRONIC ACID [Concomitant]
     Active Substance: ALENDRONIC ACID
     Indication: PRODUCT USED FOR UNKNOWN INDICATION
     Dosage: 70 MG,UNK,
     Route: 048
  12. SENNA [Concomitant]
     Active Substance: SENNA LEAF\SENNOSIDES\SENNOSIDES A AND B
     Indication: PRODUCT USED FOR UNKNOWN INDICATION
     Dosage: 15 MG,UNK,
     Route: 048
  13. CITALOPRAM [Concomitant]
     Active Substance: CITALOPRAM HYDROBROMIDE
     Indication: DEPRESSION
     Dosage: 20 MG, ONCE A DAY
     Route: 048
     Dates: start: 200808
  14. PROPRANOLOL [Concomitant]
     Active Substance: PROPRANOLOL\PROPRANOLOL HYDROCHLORIDE
     Indication: CARDIAC DISORDER
     Dosage: UNK
     Route: 048

REACTIONS (1)
  - Platelet count decreased [Not Recovered/Not Resolved]

NARRATIVE: CASE EVENT DATE: 20110307
